FAERS Safety Report 18633424 (Version 1)
Quarter: 2020Q4

REPORT INFORMATION
  Report Type: Spontaneous
  Country: SE (occurrence: SE)
  Receive Date: 20201218
  Receipt Date: 20201218
  Transmission Date: 20210114
  Serious: Yes (Disabling)
  Sender: FDA-Public Use
  Company Number: SE-GLAXOSMITHKLINE-SE2020246120

PATIENT
  Age: 47 Year
  Sex: Male
  Weight: 80 kg

DRUGS (4)
  1. AVAMYS [Suspect]
     Active Substance: FLUTICASONE FUROATE
     Indication: SINUS PAIN
     Dosage: UNK, (TREATED WITH ALL FOUR SUSPECTED DRUGS PERIODICALLY DURING THE YEARS 2005-2018.)
     Route: 065
     Dates: start: 2005, end: 2018
  2. NASONEX [Suspect]
     Active Substance: MOMETASONE FUROATE
     Indication: SINUS PAIN
     Dosage: 2 DF, QD, (ONE SPRAY EACH NOSTRIL MORNING AND EVENING. TREATED WITH ALL FOUR SUSPECTED DRUGS PERIO)
     Route: 045
     Dates: start: 2005, end: 2018
  3. DESONIX (BUDESONID) [Suspect]
     Active Substance: BUDESONIDE
     Indication: SINUS PAIN
     Dosage: UNK, (TREATED WITH ALL FOUR SUSPECTED DRUGS PERIODICALLY DURING THE YEARS 2005-2018.)
     Route: 065
     Dates: start: 2005, end: 2018
  4. MOMMOX [Suspect]
     Active Substance: MOMETASONE FUROATE
     Indication: SINUS PAIN
     Dosage: UNK, (TREATED WITH ALL FOUR SUSPECTED DRUGS PERIODICALLY DURING THE YEARS 2005-2018.)
     Route: 065
     Dates: start: 2005, end: 2018

REACTIONS (3)
  - Neuralgia [Not Recovered/Not Resolved]
  - Condition aggravated [Not Recovered/Not Resolved]
  - Neuritis [Not Recovered/Not Resolved]

NARRATIVE: CASE EVENT DATE: 2015
